FAERS Safety Report 12339062 (Version 1)
Quarter: 2016Q2

REPORT INFORMATION
  Report Type: Report from Study
  Country: US (occurrence: US)
  Receive Date: 20160505
  Receipt Date: 20160505
  Transmission Date: 20160815
  Serious: Yes (Hospitalization)
  Sender: FDA-Public Use
  Company Number: US-CELGENEUS-USA-2016048391

PATIENT
  Age: 68 Year
  Sex: Male

DRUGS (9)
  1. DEXAMETHASONE. [Suspect]
     Active Substance: DEXAMETHASONE
     Indication: PLASMA CELL MYELOMA
     Dosage: 1 MILLIGRAM/SQ. METER
     Route: 041
     Dates: start: 20150903, end: 20150908
  2. INCB052793 [Suspect]
     Active Substance: INVESTIGATIONAL PRODUCT
     Indication: PLASMA CELL MYELOMA
     Dosage: 40 MILLIGRAM
     Route: 048
     Dates: start: 20150807, end: 20150828
  3. PREDNISONE. [Concomitant]
     Active Substance: PREDNISONE
     Indication: PRODUCT USED FOR UNKNOWN INDICATION
     Route: 048
     Dates: start: 20150918, end: 20150922
  4. VELCADE [Suspect]
     Active Substance: BORTEZOMIB
     Indication: PLASMA CELL MYELOMA
     Dosage: 8 MILLIGRAM
     Route: 058
     Dates: start: 20150903, end: 20150908
  5. EXCEDRIN [Concomitant]
     Active Substance: ACETAMINOPHEN\ASPIRIN\CAFFEINE
     Indication: PYREXIA
     Route: 065
  6. BACTRIM DS [Concomitant]
     Active Substance: SULFAMETHOXAZOLE\TRIMETHOPRIM
     Indication: PRODUCT USED FOR UNKNOWN INDICATION
     Route: 048
     Dates: start: 20150918, end: 20150928
  7. THALOMID [Suspect]
     Active Substance: THALIDOMIDE
     Indication: PLASMA CELL MYELOMA
     Dosage: 100 MILLIGRAM
     Route: 048
     Dates: start: 20150903, end: 20150910
  8. MELPHALAN [Suspect]
     Active Substance: MELPHALAN
     Indication: PLASMA CELL MYELOMA
     Route: 048
     Dates: start: 20150903, end: 20150908
  9. ASCORBIC ACID. [Concomitant]
     Active Substance: ASCORBIC ACID
     Indication: PLASMA CELL MYELOMA
     Dosage: 25 MILLIGRAM
     Route: 065
     Dates: start: 20150903, end: 20150908

REACTIONS (1)
  - Pneumonia [Recovered/Resolved]

NARRATIVE: CASE EVENT DATE: 20150911
